FAERS Safety Report 20864904 (Version 1)
Quarter: 2022Q2

REPORT INFORMATION
  Report Type: Spontaneous
  Country: US (occurrence: US)
  Receive Date: 20220524
  Receipt Date: 20220524
  Transmission Date: 20220721
  Serious: No
  Sender: FDA-Public Use
  Company Number: US-BRISTOL-MYERS SQUIBB COMPANY-2022-028592

PATIENT
  Age: 25 Year
  Sex: Female

DRUGS (1)
  1. ORENCIA [Suspect]
     Active Substance: ABATACEPT
     Indication: Rheumatoid arthritis
     Route: 058
     Dates: start: 20220121

REACTIONS (7)
  - Pain [Unknown]
  - Arthralgia [Unknown]
  - Quality of life decreased [Unknown]
  - Urinary tract infection [Unknown]
  - Renal disorder [Unknown]
  - Abdominal distension [Unknown]
  - Gallbladder disorder [Unknown]

NARRATIVE: CASE EVENT DATE: 20220201
